FAERS Safety Report 5640967-7 (Version None)
Quarter: 2008Q1

REPORT INFORMATION
  Report Type: 
  Country: None (occurrence: None)
  Receive Date: 20080227
  Receipt Date: 20080221
  Transmission Date: 20080703
  Serious: Yes (Other)
  Sender: FDA-Public Use
  Company Number: AT-ABBOTT-08P-009-0435228-00

PATIENT
  Sex: Male
  Weight: 85 kg

DRUGS (5)
  1. HUMIRA [Suspect]
     Indication: PSORIATIC ARTHROPATHY
     Route: 058
     Dates: start: 20080118, end: 20080118
  2. TRAMADOL HCL [Concomitant]
     Indication: PSORIATIC ARTHROPATHY
     Dosage: RETARD
     Route: 048
  3. EBETREXAT [Concomitant]
     Indication: PSORIATIC ARTHROPATHY
  4. PANTOPRAZOLE [Concomitant]
     Indication: PROPHYLAXIS AGAINST GASTROINTESTINAL ULCER
     Route: 048
  5. LORNOXICAM [Concomitant]
     Indication: PSORIATIC ARTHROPATHY
     Dosage: RAPID
     Route: 048

REACTIONS (3)
  - DYSPNOEA [None]
  - HYPERSENSITIVITY [None]
  - SWELLING FACE [None]
